FAERS Safety Report 17951146 (Version 1)
Quarter: 2020Q2

REPORT INFORMATION
  Report Type: Spontaneous
  Country: US (occurrence: US)
  Receive Date: 20200626
  Receipt Date: 20200626
  Transmission Date: 20200714
  Serious: No
  Sender: FDA-Public Use
  Company Number: US-SA-2020SA160766

PATIENT

DRUGS (2)
  1. DUPIXENT [Suspect]
     Active Substance: DUPILUMAB
     Indication: SYSTEMIC LUPUS ERYTHEMATOSUS
     Dosage: 300 MG, QOW
     Route: 058
     Dates: start: 20200110
  2. HYDROXYCHLOROQUINE [Suspect]
     Active Substance: HYDROXYCHLOROQUINE
     Dosage: UNK
     Dates: start: 202005

REACTIONS (2)
  - Product use in unapproved indication [Unknown]
  - Headache [Unknown]

NARRATIVE: CASE EVENT DATE: 2020
